FAERS Safety Report 23182855 (Version 1)
Quarter: 2023Q4

REPORT INFORMATION
  Report Type: Spontaneous
  Country: ES (occurrence: ES)
  Receive Date: 20231114
  Receipt Date: 20231114
  Transmission Date: 20240110
  Serious: Yes (Hospitalization, Other)
  Sender: FDA-Public Use
  Company Number: None

PATIENT
  Age: 58 Year
  Sex: Male
  Weight: 62 kg

DRUGS (2)
  1. KYMRIAH [Suspect]
     Active Substance: TISAGENLECLEUCEL
     Indication: Follicular lymphoma
     Dosage: 24ML, 3.8X10^8 CELULAR T CAR
     Route: 042
     Dates: start: 20220927, end: 20220927
  2. DEXKETOPROFEN [Suspect]
     Active Substance: DEXKETOPROFEN
     Indication: Pyrexia
     Dosage: 50 MG, Q8H
     Route: 042
     Dates: start: 20220930, end: 20220930

REACTIONS (2)
  - Cytokine release syndrome [Recovered/Resolved]
  - Localised oedema [Recovered/Resolved]

NARRATIVE: CASE EVENT DATE: 20220930
